FAERS Safety Report 5526333-3 (Version None)
Quarter: 2007Q4

REPORT INFORMATION
  Report Type: 
  Country: None (occurrence: None)
  Receive Date: 20071121
  Receipt Date: 20071121
  Transmission Date: 20080405
  Serious: Yes (Hospitalization)
  Sender: FDA-Public Use
  Company Number: None

PATIENT
  Age: 25 Year
  Sex: Male
  Weight: 108 kg

DRUGS (1)
  1. CEFTRIAXONE [Suspect]
     Indication: PERITONITIS
     Dosage: 1 GM X1 IV
     Route: 042
     Dates: start: 20070531

REACTIONS (4)
  - DYSPNOEA [None]
  - GASTROENTERITIS [None]
  - PRURITUS [None]
  - URTICARIA [None]
